FAERS Safety Report 6820408-4 (Version None)
Quarter: 2010Q3

REPORT INFORMATION
  Report Type: 
  Country: None (occurrence: None)
  Receive Date: 20100707
  Receipt Date: 20100618
  Transmission Date: 20110219
  Serious: No
  Sender: FDA-Public Use
  Company Number: US-TEVA-239551USA

PATIENT
  Age: 80 Year
  Sex: Female
  Weight: 52.21 kg

DRUGS (3)
  1. SALBUTAMOL SULFATE INHALATION, 0.09 MG [Suspect]
     Dates: start: 20100616, end: 20100616
  2. SERETIDE                           /01420901/ [Concomitant]
  3. TIOTROPIUM BROMIDE [Concomitant]

REACTIONS (1)
  - ATRIAL FIBRILLATION [None]
